FAERS Safety Report 5103471-0 (Version None)
Quarter: 2006Q3

REPORT INFORMATION
  Report Type: 
  Country: None (occurrence: None)
  Receive Date: 20060913
  Receipt Date: 20060905
  Transmission Date: 20061208
  Serious: Yes (Death, Hospitalization)
  Sender: FDA-Public Use
  Company Number: US-JNJFOC-20060902020

PATIENT
  Age: 70 Year
  Sex: Female

DRUGS (4)
  1. ACETAMINOPHEN [Suspect]
     Route: 048
  2. ACETAMINOPHEN [Suspect]
     Indication: SUICIDE ATTEMPT
     Dosage: UNKNOWN
     Route: 048
  3. TRAZODONE HCL [Suspect]
     Indication: SUICIDE ATTEMPT
     Route: 048
  4. REMERON [Suspect]
     Indication: SUICIDE ATTEMPT
     Route: 048

REACTIONS (4)
  - ASPIRATION [None]
  - CARDIO-RESPIRATORY ARREST [None]
  - COMPLETED SUICIDE [None]
  - MULTIPLE DRUG OVERDOSE INTENTIONAL [None]
